FAERS Safety Report 4946140-X (Version None)
Quarter: 2006Q1

REPORT INFORMATION
  Report Type: 
  Country: None (occurrence: None)
  Receive Date: 20060118
  Receipt Date: 20050307
  Transmission Date: 20060701
  Serious: Yes (Life-Threatening, Hospitalization)
  Sender: FDA-Public Use
  Company Number: BDI-007008

PATIENT
  Age: 74 Year
  Sex: Female

DRUGS (1)
  1. PROHANCE [Suspect]
     Indication: ARTERIOGRAM CAROTID
     Dosage: 50 ML ONCE IV
     Route: 042
     Dates: start: 20050304, end: 20050304

REACTIONS (1)
  - ANAPHYLACTOID REACTION [None]
